FAERS Safety Report 22989223 (Version 2)
Quarter: 2023Q4

REPORT INFORMATION
  Report Type: Spontaneous
  Country: JP (occurrence: JP)
  Receive Date: 20230927
  Receipt Date: 20231006
  Transmission Date: 20240109
  Serious: Yes (Life-Threatening, Hospitalization, Other)
  Sender: FDA-Public Use
  Company Number: JP-MACLEODS PHARMACEUTICALS US LTD-MAC2023043538

PATIENT

DRUGS (2)
  1. OLANZAPINE [Suspect]
     Active Substance: OLANZAPINE
     Indication: Schizophrenia
     Dosage: 5 MILLIGRAM, QD (LOW DOSES FOR APPROXIMATELY 2 YEARS) (TIME TO ONSET: 730 DAYS)
     Route: 048
  2. VALPROIC ACID [Concomitant]
     Active Substance: VALPROIC ACID
     Indication: Schizophrenia
     Dosage: 200 MILLIGRAM, QD
     Route: 048

REACTIONS (7)
  - Altered state of consciousness [Recovered/Resolved]
  - Respiratory depression [Recovered/Resolved]
  - Respiratory acidosis [Recovered/Resolved]
  - Cardiac failure congestive [Recovered/Resolved]
  - Metabolic alkalosis [Recovered/Resolved]
  - Bundle branch block right [Recovered/Resolved]
  - Hypercapnia [Recovered/Resolved]
